FAERS Safety Report 15640838 (Version 1)
Quarter: 2018Q4

REPORT INFORMATION
  Report Type: Other
  Country: PT (occurrence: PT)
  Receive Date: 20181120
  Receipt Date: 20181120
  Transmission Date: 20190205
  Serious: Yes (Other)
  Sender: FDA-Public Use
  Company Number: PT-CELLTRION INC.-2018PT023802

PATIENT

DRUGS (3)
  1. INFLIXIMAB (UNKNOWN) [Suspect]
     Active Substance: INFLIXIMAB
     Dosage: 10 MG/KG, 6/6 WEEKS
     Route: 042
     Dates: start: 20181025, end: 20181025
  2. PARACETAMOL [Concomitant]
     Active Substance: ACETAMINOPHEN
  3. INFLIXIMAB (UNKNOWN) [Suspect]
     Active Substance: INFLIXIMAB
     Indication: COLITIS ULCERATIVE
     Dosage: 10 MG/KG
     Route: 042
     Dates: start: 20160912, end: 20160912

REACTIONS (4)
  - Lip oedema [Recovered/Resolved]
  - Flushing [Recovered/Resolved]
  - Tachycardia [Recovered/Resolved]
  - Incorrect dose administered [Unknown]

NARRATIVE: CASE EVENT DATE: 20181025
